FAERS Safety Report 6216645-2 (Version None)
Quarter: 2009Q2

REPORT INFORMATION
  Report Type: 
  Country: None (occurrence: None)
  Receive Date: 20090605
  Receipt Date: 20090527
  Transmission Date: 20091009
  Serious: Yes (Other)
  Sender: FDA-Public Use
  Company Number: PHHY2009DE21011

PATIENT
  Sex: Female

DRUGS (1)
  1. ZOMETA [Suspect]
     Indication: PROSTATE CANCER
     Dosage: UNK
     Route: 042
     Dates: start: 20040101

REACTIONS (3)
  - BONE DISORDER [None]
  - FISTULA [None]
  - OSTEONECROSIS [None]
